FAERS Safety Report 5315813-1 (Version None)
Quarter: 2007Q2

REPORT INFORMATION
  Report Type: 
  Country: None (occurrence: None)
  Receive Date: 20070503
  Receipt Date: 20070427
  Transmission Date: 20071010
  Serious: Yes (Hospitalization)
  Sender: FDA-Public Use
  Company Number: BE-GLAXOSMITHKLINE-B0467694A

PATIENT
  Age: 52 Year
  Sex: Female
  Weight: 61 kg

DRUGS (3)
  1. LAPATINIB [Suspect]
     Dosage: 1250MG PER DAY
     Route: 048
     Dates: start: 20070314
  2. CAPECITABINE [Suspect]
     Dosage: 2000MG PER DAY
     Route: 048
     Dates: start: 20070314
  3. OMEPRAZOLE [Concomitant]
     Indication: GASTRIC ULCER
     Route: 048
     Dates: start: 20070301

REACTIONS (3)
  - FATIGUE [None]
  - HYPONATRAEMIA [None]
  - SOMNOLENCE [None]
